FAERS Safety Report 4635718-9 (Version None)
Quarter: 2005Q2

REPORT INFORMATION
  Report Type: 
  Country: None (occurrence: None)
  Receive Date: 20050413
  Receipt Date: 20050405
  Transmission Date: 20051028
  Serious: Yes (Hospitalization)
  Sender: FDA-Public Use
  Company Number: HQWYE336324MAR05

PATIENT
  Age: 86 Year
  Sex: Male
  Weight: 64.92 kg

DRUGS (2)
  1. MYLOTARG [Suspect]
     Indication: ACUTE MYELOID LEUKAEMIA
     Dosage: 11 MG 1X PER 1 DAY, INTRAVENOUS
     Route: 042
     Dates: start: 20050301, end: 20050301
  2. MYLOTARG [Suspect]
     Indication: ACUTE MYELOID LEUKAEMIA
     Dosage: 11 MG 1X PER 1 DAY, INTRAVENOUS
     Route: 042
     Dates: start: 20050310, end: 20050310

REACTIONS (7)
  - CATHETER RELATED INFECTION [None]
  - DIARRHOEA [None]
  - HAEMOGLOBIN DECREASED [None]
  - NEUTROPENIA [None]
  - PLATELET COUNT DECREASED [None]
  - STAPHYLOCOCCAL BACTERAEMIA [None]
  - WHITE BLOOD CELL COUNT DECREASED [None]
